FAERS Safety Report 24871514 (Version 2)
Quarter: 2025Q2

REPORT INFORMATION
  Report Type: Spontaneous
  Country: US (occurrence: US)
  Receive Date: 20250122
  Receipt Date: 20250609
  Transmission Date: 20250717
  Serious: Yes (Other)
  Sender: ALEXION PHARMACEUTICALS
  Company Number: US-AstraZeneca-CH-00787146AP

PATIENT

DRUGS (1)
  1. AIRSUPRA [Suspect]
     Active Substance: ALBUTEROL SULFATE\BUDESONIDE
     Route: 065

REACTIONS (11)
  - Pneumonitis [Recovering/Resolving]
  - Blood pressure abnormal [Recovering/Resolving]
  - Dyspnoea [Recovering/Resolving]
  - Dysphonia [Unknown]
  - Illness [Unknown]
  - Device use issue [Unknown]
  - Insurance issue [Unknown]
  - Incorrect dose administered by device [Unknown]
  - Device delivery system issue [Unknown]
  - Product quality issue [Unknown]
  - Device malfunction [Unknown]
